FAERS Safety Report 6174442-0 (Version None)
Quarter: 2009Q2

REPORT INFORMATION
  Report Type: 
  Country: None (occurrence: None)
  Receive Date: 20090430
  Receipt Date: 20080609
  Transmission Date: 20091009
  Serious: No
  Sender: FDA-Public Use
  Company Number: US-ASTRAZENECA-2008UW11490

PATIENT
  Age: 88 Year
  Sex: Female

DRUGS (1)
  1. NEXIUM [Suspect]
     Indication: DYSGEUSIA
     Route: 048
     Dates: start: 20080608

REACTIONS (3)
  - DYSPHONIA [None]
  - FREQUENT BOWEL MOVEMENTS [None]
  - OROPHARYNGEAL PAIN [None]
